FAERS Safety Report 7598460-0 (Version None)
Quarter: 2011Q3

REPORT INFORMATION
  Report Type: 
  Country: None (occurrence: None)
  Receive Date: 20110708
  Receipt Date: 20110705
  Transmission Date: 20111222
  Serious: Yes (Death, Other)
  Sender: FDA-Public Use
  Company Number: US-ELI_LILLY_AND_COMPANY-US201107001267

PATIENT
  Sex: Female

DRUGS (2)
  1. GEMZAR [Suspect]
     Indication: BLADDER CANCER
     Dosage: 750 MG/M2, EVERY 3 WEEKS ON DAY 1 AND DAY 10
     Dates: start: 20110401, end: 20110531
  2. CARBOPLATIN [Concomitant]

REACTIONS (2)
  - DEATH [None]
  - HOSPICE CARE [None]
